FAERS Safety Report 7758431-8 (Version None)
Quarter: 2011Q3

REPORT INFORMATION
  Report Type: 
  Country: None (occurrence: None)
  Receive Date: 20110919
  Receipt Date: 20110913
  Transmission Date: 20111222
  Serious: Yes (Other)
  Sender: FDA-Public Use
  Company Number: US-PFIZER INC-2011216597

PATIENT
  Sex: Male
  Weight: 93.878 kg

DRUGS (2)
  1. PRISTIQ [Suspect]
     Indication: DEPRESSION
     Dosage: 50 MG, 1X/DAY
     Route: 048
     Dates: start: 20100501, end: 20110901
  2. CRESTOR [Concomitant]
     Dosage: UNK

REACTIONS (1)
  - RASH GENERALISED [None]
